FAERS Safety Report 23266389 (Version 1)
Quarter: 2023Q4

REPORT INFORMATION
  Report Type: Spontaneous
  Country: US (occurrence: US)
  Receive Date: 20231206
  Receipt Date: 20231206
  Transmission Date: 20240110
  Serious: Yes (Other)
  Sender: FDA-Public Use
  Company Number: US-SUNOVION-2023SUN001280AA

PATIENT

DRUGS (1)
  1. LATUDA [Suspect]
     Active Substance: LURASIDONE HYDROCHLORIDE
     Indication: Affective disorder
     Dosage: 20 MG
     Route: 048
     Dates: start: 20191105

REACTIONS (34)
  - Petit mal epilepsy [Unknown]
  - Syncope [Unknown]
  - Respiratory rate increased [Unknown]
  - Pallor [Unknown]
  - Sleep terror [Unknown]
  - Atonic seizures [Unknown]
  - Amnesia [Unknown]
  - Genital rash [Unknown]
  - Movement disorder [Unknown]
  - Peripheral swelling [Unknown]
  - Speech disorder [Unknown]
  - Chest pain [Unknown]
  - Breast swelling [Unknown]
  - Hypoaesthesia [Unknown]
  - Gait disturbance [Unknown]
  - Chest discomfort [Unknown]
  - Pain [Unknown]
  - Hepatic steatosis [Unknown]
  - Blood cholesterol increased [Unknown]
  - Asthenia [Unknown]
  - Urinary tract infection [Unknown]
  - Headache [Unknown]
  - Vision blurred [Unknown]
  - Dizziness [Unknown]
  - Fatigue [Unknown]
  - Urticaria [Unknown]
  - Rash [Unknown]
  - Back pain [Unknown]
  - Weight increased [Unknown]
  - Hypersomnia [Unknown]
  - Insomnia [Unknown]
  - Dry mouth [Unknown]
  - Salivary hypersecretion [Unknown]
  - Off label use [Unknown]
